FAERS Safety Report 4656585-3 (Version None)
Quarter: 2005Q2

REPORT INFORMATION
  Report Type: 
  Country: None (occurrence: None)
  Receive Date: 20050331
  Receipt Date: 20041215
  Transmission Date: 20051028
  Serious: No
  Sender: FDA-Public Use
  Company Number: US103939

PATIENT
  Age: 21 Year
  Sex: Male
  Weight: 70 kg

DRUGS (4)
  1. NEULASTA [Suspect]
     Indication: CHEMOTHERAPY
     Dosage: 6 MG, SC
     Route: 058
     Dates: start: 20041121
  2. VORICONAZOLE [Concomitant]
  3. CITALOPRAM [Concomitant]
  4. TERBINAFINE [Concomitant]

REACTIONS (4)
  - ANOREXIA [None]
  - INFLUENZA LIKE ILLNESS [None]
  - LETHARGY [None]
  - VOMITING [None]
